FAERS Safety Report 6120229-4 (Version None)
Quarter: 2009Q1

REPORT INFORMATION
  Report Type: 
  Country: None (occurrence: None)
  Receive Date: 20090312
  Receipt Date: 20090304
  Transmission Date: 20090719
  Serious: Yes (Death, Life-Threatening, Other)
  Sender: FDA-Public Use
  Company Number: CLOF-1000430

PATIENT
  Age: 60 Year
  Sex: Female
  Weight: 71.7 kg

DRUGS (5)
  1. CLOLAR [Suspect]
     Indication: ACUTE MYELOID LEUKAEMIA
     Dosage: 25 MG/M2, QDX5, INTRAVENOUS
     Route: 042
     Dates: start: 20090103, end: 20090107
  2. CYTARABINE [Suspect]
     Indication: ACUTE MYELOID LEUKAEMIA
     Dosage: 2 G/M2, QDX5, INTRAVENOUS
     Route: 042
     Dates: start: 20090104, end: 20090108
  3. GRANULOCYTE COLONY STIMULATING FACTOR (GRANULOCYTE COLONY STIMULATING [Suspect]
     Indication: ACUTE MYELOID LEUKAEMIA
     Dosage: INTRAVENOUS
     Route: 042
  4. VORICONAZOLE (VORICONAZOLE)Q [Concomitant]
  5. ACYCLOVIR [Concomitant]

REACTIONS (8)
  - CONVULSION [None]
  - ENTEROCOCCAL BACTERAEMIA [None]
  - HYPOTENSION [None]
  - MENINGITIS [None]
  - PULMONARY OEDEMA [None]
  - PYREXIA [None]
  - RESPIRATORY FAILURE [None]
  - SEPTIC SHOCK [None]
